FAERS Safety Report 21612048 (Version 3)
Quarter: 2022Q4

REPORT INFORMATION
  Report Type: Spontaneous
  Country: CN (occurrence: CN)
  Receive Date: 20221118
  Receipt Date: 20221122
  Transmission Date: 20230112
  Serious: Yes (Death, Life-Threatening, Other)
  Sender: FDA-Public Use
  Company Number: CN-009507513-2211CHN003153

PATIENT
  Age: 32 Year
  Sex: Male

DRUGS (6)
  1. CILASTATIN SODIUM\IMIPENEM [Suspect]
     Active Substance: CILASTATIN SODIUM\IMIPENEM
     Indication: Sepsis
     Dosage: 0.5 G. Q6H
     Route: 041
     Dates: start: 20211011, end: 20211019
  2. CILASTATIN SODIUM\IMIPENEM [Suspect]
     Active Substance: CILASTATIN SODIUM\IMIPENEM
     Indication: Pneumonia
  3. VANCOMYCIN [Suspect]
     Active Substance: VANCOMYCIN
     Indication: Sepsis
     Dosage: 1000 MG. Q12H
     Route: 041
     Dates: start: 20210111, end: 20210119
  4. VANCOMYCIN [Suspect]
     Active Substance: VANCOMYCIN
     Indication: Pneumonia
  5. TIGECYCLINE [Suspect]
     Active Substance: TIGECYCLINE
     Indication: Sepsis
     Dosage: 50 MILLIGRAM, Q12H
     Route: 041
     Dates: start: 20210115, end: 20210119
  6. TIGECYCLINE [Suspect]
     Active Substance: TIGECYCLINE
     Indication: Pneumonia

REACTIONS (7)
  - Intracardiac thrombus [Unknown]
  - Pulmonary embolism [Unknown]
  - Obstructive shock [Unknown]
  - Acinetobacter infection [Unknown]
  - Pathogen resistance [Unknown]
  - Haemoglobin decreased [Unknown]
  - Klebsiella infection [Fatal]

NARRATIVE: CASE EVENT DATE: 20211013
